FAERS Safety Report 20911931 (Version 1)
Quarter: 2022Q2

REPORT INFORMATION
  Report Type: Spontaneous
  Country: AU (occurrence: AU)
  Receive Date: 20220603
  Receipt Date: 20220603
  Transmission Date: 20220720
  Serious: Yes (Hospitalization)
  Sender: FDA-Public Use
  Company Number: AU-MYLANLABS-2022M1041468

PATIENT
  Age: 7 Decade
  Sex: Female

DRUGS (13)
  1. TACROLIMUS [Suspect]
     Active Substance: TACROLIMUS
     Indication: Cutaneous calcification
     Dosage: UNK
     Route: 061
  2. PREGABALIN [Suspect]
     Active Substance: PREGABALIN
     Indication: Cutaneous calcification
     Dosage: 150 MILLIGRAM, AM
     Route: 065
  3. PREGABALIN [Suspect]
     Active Substance: PREGABALIN
     Dosage: 300 MILLIGRAM IN THE NIGHT
     Route: 065
  4. AMITRIPTYLINE [Suspect]
     Active Substance: AMITRIPTYLINE
     Indication: Cutaneous calcification
     Dosage: 75 MILLIGRAM, PM
     Route: 065
  5. CELECOXIB [Suspect]
     Active Substance: CELECOXIB
     Indication: Cutaneous calcification
     Dosage: 200 MILLIGRAM, QD
     Route: 065
  6. COLCHICINE [Suspect]
     Active Substance: COLCHICINE
     Indication: Cutaneous calcification
     Dosage: 0.5 MILLIGRAM, TID
     Route: 065
  7. DILTIAZEM [Suspect]
     Active Substance: DILTIAZEM
     Indication: Cutaneous calcification
     Dosage: 180 MILLIGRAM, BID
     Route: 048
  8. SODIUM THIOSULFATE [Suspect]
     Active Substance: SODIUM THIOSULFATE
     Indication: Cutaneous calcification
     Dosage: UNK
     Route: 061
  9. PREDNISOLONE [Suspect]
     Active Substance: PREDNISOLONE
     Indication: Cutaneous calcification
     Dosage: 50 MILLIGRAM, WITH THE HIGHEST DOSE..
     Route: 048
  10. CLOBETASOL [Suspect]
     Active Substance: CLOBETASOL
     Indication: Cutaneous calcification
     Dosage: UNK
     Route: 061
  11. METHOTREXATE [Concomitant]
     Active Substance: METHOTREXATE
     Indication: Eosinophilic fasciitis
     Dosage: 30 MILLIGRAM, QW
     Route: 065
  12. CHLORHEXIDINE [Concomitant]
     Active Substance: CHLORHEXIDINE
     Indication: Cutaneous calcification
     Dosage: UNK
     Route: 065
  13. LIDOCAINE [Concomitant]
     Active Substance: LIDOCAINE
     Indication: Nerve block
     Dosage: 5 MILLILITER
     Route: 065

REACTIONS (2)
  - Drug ineffective [Unknown]
  - Off label use [Unknown]
